FAERS Safety Report 7493409-3 (Version None)
Quarter: 2011Q2

REPORT INFORMATION
  Report Type: 
  Country: None (occurrence: None)
  Receive Date: 20110520
  Receipt Date: 20110517
  Transmission Date: 20111010
  Serious: Yes (Hospitalization, Other)
  Sender: FDA-Public Use
  Company Number: US-PFIZER INC-2011084794

PATIENT
  Sex: Male
  Weight: 81.633 kg

DRUGS (2)
  1. TOVIAZ [Suspect]
     Indication: URINARY INCONTINENCE
     Dosage: 4 MG, 1X/DAY
     Route: 048
     Dates: start: 20110314, end: 20110316
  2. NATEGLINIDE [Concomitant]
     Indication: DIABETES MELLITUS
     Dosage: 60 MG, 3X/DAY
     Route: 048

REACTIONS (7)
  - CONFUSIONAL STATE [None]
  - URINARY TRACT INFECTION [None]
  - PYREXIA [None]
  - DISORIENTATION [None]
  - GAIT DISTURBANCE [None]
  - DYSSTASIA [None]
  - FEELING HOT [None]
